FAERS Safety Report 6399268-4 (Version None)
Quarter: 2009Q4

REPORT INFORMATION
  Report Type: 
  Country: None (occurrence: None)
  Receive Date: 20091014
  Receipt Date: 20091005
  Transmission Date: 20100525
  Serious: Yes (Hospitalization)
  Sender: FDA-Public Use
  Company Number: BE-RANBAXY-2008RR-19373

PATIENT
  Age: 22 Year
  Sex: Female

DRUGS (10)
  1. TACROLIMUS [Suspect]
     Indication: IMMUNOSUPPRESSION
     Dosage: 4-5 MG
     Route: 048
  2. CLARITHROMYCIN [Suspect]
     Dosage: 500 MG, SINGLE
     Route: 042
  3. TACROLIMUS [Suspect]
     Dosage: 0.25/24U
     Route: 042
  4. METHYLPREDNISOLONE [Concomitant]
     Indication: IMMUNOSUPPRESSION
     Dosage: 4 MG, UNK
     Route: 048
  5. MEROPENEM [Concomitant]
     Indication: PNEUMONIA
  6. TRIMETHOPRIM + SULFAMETHOXAZOLE [Concomitant]
  7. GANCICLOVIR [Concomitant]
     Indication: PROPHYLAXIS
  8. MIDAZOLAM HCL [Concomitant]
  9. PIRITRAMIDE [Concomitant]
  10. AZATHIOPRINE [Concomitant]

REACTIONS (2)
  - DRUG INTERACTION [None]
  - DRUG LEVEL INCREASED [None]
